FAERS Safety Report 5151161-0 (Version None)
Quarter: 2006Q4

REPORT INFORMATION
  Report Type: 
  Country: None (occurrence: None)
  Receive Date: 20061115
  Receipt Date: 20060120
  Transmission Date: 20070319
  Serious: Yes (Hospitalization, Disabling)
  Sender: FDA-Public Use
  Company Number: US-BAYER-200610431BWH

PATIENT
  Age: 81 Year
  Sex: Female
  Weight: 47 kg

DRUGS (5)
  1. SORAFENIB [Suspect]
     Indication: METASTATIC RENAL CELL CARCINOMA
     Dosage: TOTAL DAILY DOSE: 800 MG  UNIT DOSE: 200 MG
     Route: 048
     Dates: start: 20051216, end: 20051224
  2. GLUCOPHAGE [Concomitant]
     Indication: DIABETES MELLITUS NON-INSULIN-DEPENDENT
     Route: 048
  3. AMITRIPTYLINE HCL [Concomitant]
     Indication: INSOMNIA
     Route: 048
  4. DETROL [Concomitant]
     Indication: URINARY INCONTINENCE
     Route: 048
  5. STOOL SOFTENER [Concomitant]
     Indication: CONSTIPATION
     Route: 048

REACTIONS (5)
  - ASTHENIA [None]
  - CONFUSIONAL STATE [None]
  - HYPERSENSITIVITY [None]
  - HYPERTENSION [None]
  - URTICARIA [None]
